FAERS Safety Report 11935323 (Version 2)
Quarter: 2016Q1

REPORT INFORMATION
  Report Type: Spontaneous
  Country: US (occurrence: US)
  Receive Date: 20160121
  Receipt Date: 20160328
  Transmission Date: 20160526
  Serious: No
  Sender: FDA-Public Use
  Company Number: US-PFIZER INC-2016028097

PATIENT
  Age: 16 Month
  Sex: Female
  Weight: 10 kg

DRUGS (1)
  1. FLAGYL [Suspect]
     Active Substance: METRONIDAZOLE\METRONIDAZOLE HYDROCHLORIDE
     Indication: CLOSTRIDIUM DIFFICILE INFECTION
     Dosage: 1 DF, DAILY (500MG TABLET SPLIT INTO 4 PIECES, DOSE IS ONE WHOLE TABLET DAILY)
     Dates: start: 20160112

REACTIONS (3)
  - Vomiting [Unknown]
  - Product use issue [Not Recovered/Not Resolved]
  - Drug dose omission [Not Recovered/Not Resolved]

NARRATIVE: CASE EVENT DATE: 20160112
